FAERS Safety Report 18610054 (Version 1)
Quarter: 2020Q4

REPORT INFORMATION
  Report Type: Spontaneous
  Country: FR (occurrence: FR)
  Receive Date: 20201214
  Receipt Date: 20201214
  Transmission Date: 20210114
  Serious: Yes (Hospitalization)
  Sender: FDA-Public Use
  Company Number: FR-ACCORD-210687

PATIENT
  Age: 67 Year

DRUGS (1)
  1. QUETIAPINE. [Suspect]
     Active Substance: QUETIAPINE
     Indication: BIPOLAR DISORDER
     Route: 048
     Dates: end: 20201110

REACTIONS (2)
  - Parkinsonism [Not Recovered/Not Resolved]
  - Hypervigilance [Not Recovered/Not Resolved]

NARRATIVE: CASE EVENT DATE: 20201110
